FAERS Safety Report 6574329-5 (Version None)
Quarter: 2010Q1

REPORT INFORMATION
  Report Type: 
  Country: None (occurrence: None)
  Receive Date: 20100201
  Receipt Date: 20100119
  Transmission Date: 20100710
  Serious: Yes (Hospitalization)
  Sender: FDA-Public Use
  Company Number: 220015N09DEU

PATIENT
  Age: 6 Year
  Sex: Male
  Weight: 25 kg

DRUGS (5)
  1. SAIZEN [Suspect]
     Indication: GROWTH RETARDATION
     Dosage: 0.4, SUBCUTANEOUS; 0.6 1 IN 1 DAYS, SUBCUTANEOUS
     Route: 058
     Dates: start: 20070401, end: 20081208
  2. SAIZEN [Suspect]
     Indication: GROWTH RETARDATION
     Dosage: 0.4, SUBCUTANEOUS; 0.6 1 IN 1 DAYS, SUBCUTANEOUS
     Route: 058
     Dates: start: 20081209, end: 20090407
  3. HYDROCORTISONE (HYDROCORTISONE /00028601/) [Concomitant]
  4. LEVOTHYROXINE SODIUM [Concomitant]
  5. ORFIRIL (VALPROIC ACID /00228501/) [Concomitant]

REACTIONS (3)
  - ASTROCYTOMA [None]
  - CEREBRAL HYGROMA [None]
  - NEOPLASM PROGRESSION [None]
